FAERS Safety Report 13581721 (Version 1)
Quarter: 2017Q2

REPORT INFORMATION
  Report Type: Spontaneous
  Country: JP (occurrence: JP)
  Receive Date: 20170525
  Receipt Date: 20170525
  Transmission Date: 20170830
  Serious: Yes (Other)
  Sender: FDA-Public Use
  Company Number: JP-PFIZER INC-2017223468

PATIENT
  Age: 47 Year
  Sex: Female

DRUGS (1)
  1. SALAZOPYRIN 500MG [Suspect]
     Active Substance: SULFASALAZINE
     Dosage: UNK
     Route: 048
     Dates: start: 201601, end: 201601

REACTIONS (1)
  - Acute generalised exanthematous pustulosis [Unknown]
